FAERS Safety Report 4597118-X (Version None)
Quarter: 2005Q1

REPORT INFORMATION
  Report Type: 
  Country: None (occurrence: None)
  Receive Date: 20050301
  Receipt Date: 20041109
  Transmission Date: 20050727
  Serious: Yes (Hospitalization)
  Sender: FDA-Public Use
  Company Number: 2004239462JP

PATIENT
  Age: 46 Year
  Sex: Female

DRUGS (4)
  1. SOLU-MEDROL [Suspect]
     Indication: RENAL IMPAIRMENT
     Dosage: 1000 MG, INTRAVENOUS
     Route: 042
     Dates: start: 20030912, end: 20030914
  2. PREDNISONE [Concomitant]
  3. FAMOTIDINE [Concomitant]
  4. BACTRIM [Concomitant]

REACTIONS (3)
  - LEUKOPENIA [None]
  - LYMPHOCYTE STIMULATION TEST POSITIVE [None]
  - THERAPY NON-RESPONDER [None]
